FAERS Safety Report 8018777-5 (Version None)
Quarter: 2012Q1

REPORT INFORMATION
  Report Type: 
  Country: None (occurrence: None)
  Receive Date: 20120103
  Receipt Date: 20111227
  Transmission Date: 20120608
  Serious: Yes (Other)
  Sender: FDA-Public Use
  Company Number: BR-BAYER-2011-123802

PATIENT
  Sex: Female
  Weight: 47 kg

DRUGS (2)
  1. YASMIN [Suspect]
     Indication: POLYCYSTIC OVARIES
     Dosage: UNK
     Route: 048
     Dates: start: 20100101, end: 20111001
  2. YASMIN [Suspect]
     Indication: MENSTRUATION IRREGULAR
     Dosage: UNK
     Route: 048
     Dates: start: 20111201

REACTIONS (5)
  - EYE IRRITATION [None]
  - PARAESTHESIA [None]
  - CARDIOVASCULAR DISORDER [None]
  - VARICOSE VEIN [None]
  - NO ADVERSE EVENT [None]
